FAERS Safety Report 20380797 (Version 1)
Quarter: 2022Q1

REPORT INFORMATION
  Report Type: Spontaneous
  Country: CN (occurrence: CN)
  Receive Date: 20220127
  Receipt Date: 20220127
  Transmission Date: 20220424
  Serious: Yes (Hospitalization, Other)
  Sender: FDA-Public Use
  Company Number: CN-SA-SAC20220121000877

PATIENT
  Age: 66 Year
  Sex: Male

DRUGS (8)
  1. IRBESARTAN [Suspect]
     Active Substance: IRBESARTAN
  2. IRBESARTAN [Suspect]
     Active Substance: IRBESARTAN
     Dosage: 150 MG, QD
  3. IRBESARTAN [Suspect]
     Active Substance: IRBESARTAN
     Dosage: (STRENGTH: 750MG)  DOSE OF 4 TABLETS/QD
  4. IRBESARTAN [Suspect]
     Active Substance: IRBESARTAN
     Dosage: (STRENGTH: 750MG)2 TABLETS/QD IN SUMMER
  5. AMLODIPINE\LOSARTAN [Suspect]
     Active Substance: AMLODIPINE\LOSARTAN
  6. OLMESARTAN [Concomitant]
     Active Substance: OLMESARTAN
     Dosage: 1 DF, QD
  7. NIFEDIPINE [Concomitant]
     Active Substance: NIFEDIPINE
  8. LOSARTAN [Concomitant]
     Active Substance: LOSARTAN

REACTIONS (6)
  - Blood pressure decreased [Unknown]
  - Asthenia [Unknown]
  - Dizziness [Unknown]
  - Gingival hypertrophy [Unknown]
  - Urinary tract disorder [Unknown]
  - Product use issue [Unknown]
